FAERS Safety Report 12911633 (Version 1)
Quarter: 2016Q4

REPORT INFORMATION
  Report Type: Spontaneous
  Country: US (occurrence: US)
  Receive Date: 20161104
  Receipt Date: 20161104
  Transmission Date: 20170207
  Serious: Yes (Hospitalization, Other)
  Sender: FDA-Public Use
  Company Number: PHEH2016US028440

PATIENT

DRUGS (1)
  1. NILOTINIB [Suspect]
     Active Substance: NILOTINIB
     Indication: PRODUCT USED FOR UNKNOWN INDICATION
     Dosage: 450 MG, QD
     Route: 065

REACTIONS (6)
  - Cardiac arrest [Unknown]
  - Heart rate irregular [Unknown]
  - Memory impairment [Unknown]
  - Visual impairment [Unknown]
  - Blood pressure increased [Unknown]
  - Loss of consciousness [Unknown]
